FAERS Safety Report 24014186 (Version 1)
Quarter: 2024Q2

REPORT INFORMATION
  Report Type: Spontaneous
  Country: CN (occurrence: CN)
  Receive Date: 20240626
  Receipt Date: 20240626
  Transmission Date: 20240716
  Serious: Yes (Other)
  Sender: FDA-Public Use
  Company Number: CN-STRIDES ARCOLAB LIMITED-2024SP007340

PATIENT

DRUGS (6)
  1. PREDNISOLONE [Suspect]
     Active Substance: PREDNISOLONE
     Indication: Still^s disease
     Dosage: 10 MILLIGRAM, QD
     Route: 065
  2. CYCLOSPORINE [Suspect]
     Active Substance: CYCLOSPORINE
     Indication: Still^s disease
     Dosage: 75 MILLIGRAM, BID
     Route: 065
  3. CANAKINUMAB [Suspect]
     Active Substance: CANAKINUMAB
     Indication: Still^s disease
     Dosage: 3.5 MILLIGRAM/KILOGRAM, EVERY 4 WEEKS
     Route: 065
  4. CANAKINUMAB [Suspect]
     Active Substance: CANAKINUMAB
     Dosage: 3.5 MILLIGRAM/KILOGRAM EVERY 2 WEEKS
     Route: 065
  5. TOFACITINIB [Suspect]
     Active Substance: TOFACITINIB
     Indication: Still^s disease
     Dosage: 5 MILLIGRAM, QD
     Route: 065
  6. METHOTREXATE [Concomitant]
     Active Substance: METHOTREXATE
     Indication: Still^s disease
     Dosage: 12.5 MILLIGRAM, ONCE A WEEK
     Route: 065

REACTIONS (3)
  - Disease recurrence [Unknown]
  - Therapy non-responder [Unknown]
  - Drug ineffective for unapproved indication [Unknown]
